FAERS Safety Report 8008409-4 (Version None)
Quarter: 2011Q4

REPORT INFORMATION
  Report Type: 
  Country: None (occurrence: None)
  Receive Date: 20111227
  Receipt Date: 20111222
  Transmission Date: 20120403
  Serious: Yes (Other)
  Sender: FDA-Public Use
  Company Number: GB-JNJFOC-20111108635

PATIENT
  Age: 38 Year
  Sex: Male

DRUGS (2)
  1. VALPROATE SODIUM [Concomitant]
     Indication: PRODUCT USED FOR UNKNOWN INDICATION
     Dosage: 500 MG IN THE MORNING, 750 MG AT MIDDAY AND 500 MG IN THE EVENING
     Route: 065
  2. PALIPERIDONE [Suspect]
     Indication: SCHIZOPHRENIA
     Route: 030
     Dates: start: 20100701

REACTIONS (1)
  - HYPERTENSION [None]
